FAERS Safety Report 21598007 (Version 1)
Quarter: 2022Q4

REPORT INFORMATION
  Report Type: Spontaneous
  Country: US (occurrence: US)
  Receive Date: 20221115
  Receipt Date: 20221115
  Transmission Date: 20230113
  Serious: Yes (Other)
  Sender: FDA-Public Use
  Company Number: US-BRISTOL-MYERS SQUIBB COMPANY-2022-134969

PATIENT
  Age: 57 Year
  Sex: Female

DRUGS (2)
  1. SPRYCEL [Suspect]
     Active Substance: DASATINIB
     Indication: Product used for unknown indication
     Dosage: 5 TABLETS DAILY FOR 30 DAYS
     Route: 065
  2. YERVOY [Suspect]
     Active Substance: IPILIMUMAB
     Indication: Ovarian cancer
     Dosage: STRENGTH AND PRESENTATION OF THE AE : 2, 50MG VIAL
     Route: 065

REACTIONS (2)
  - Neoplasm malignant [Unknown]
  - Off label use [Unknown]
